FAERS Safety Report 5808920-8 (Version None)
Quarter: 2008Q3

REPORT INFORMATION
  Report Type: 
  Country: None (occurrence: None)
  Receive Date: 20080714
  Receipt Date: 20080704
  Transmission Date: 20090109
  Serious: Yes (Other)
  Sender: FDA-Public Use
  Company Number: CN-MERCK-0807CHN00008

PATIENT
  Age: 76 Year
  Sex: Female

DRUGS (3)
  1. CANCIDAS [Suspect]
     Indication: ASPERGILLOSIS
     Route: 042
     Dates: start: 20080703
  2. VITAMINS (UNSPECIFIED) [Concomitant]
     Route: 065
  3. [COMPOSITION UNSPECIFIED] [Concomitant]
     Route: 065

REACTIONS (2)
  - BODY TEMPERATURE DECREASED [None]
  - LOSS OF CONSCIOUSNESS [None]
